FAERS Safety Report 7732947-2 (Version None)
Quarter: 2011Q3

REPORT INFORMATION
  Report Type: 
  Country: None (occurrence: None)
  Receive Date: 20110907
  Receipt Date: 20110825
  Transmission Date: 20111222
  Serious: Yes (Other)
  Sender: FDA-Public Use
  Company Number: GB-ASTRAZENECA-2011SE51337

PATIENT
  Age: 25090 Day
  Sex: Male

DRUGS (1)
  1. ARIMIDEX [Suspect]
     Indication: HYPOGONADISM
     Route: 048
     Dates: start: 20101012, end: 20110518

REACTIONS (1)
  - PROSTATIC SPECIFIC ANTIGEN INCREASED [None]
